FAERS Safety Report 4732005-5 (Version None)
Quarter: 2005Q3

REPORT INFORMATION
  Report Type: 
  Country: None (occurrence: None)
  Receive Date: 20050725
  Receipt Date: 20040714
  Transmission Date: 20060218
  Serious: Yes (Life-Threatening, Hospitalization)
  Sender: FDA-Public Use
  Company Number: WAES 0407USA01230

PATIENT
  Age: 34 Year
  Sex: Female

DRUGS (6)
  1. VIOXX [Suspect]
     Indication: ARTHRALGIA
     Dosage: 50 MG/DAILY/PO; 25 MG/DAILY/PO
     Route: 048
     Dates: start: 20030201, end: 20030901
  2. VIOXX [Suspect]
     Indication: PROCEDURAL PAIN
     Dosage: 50 MG/DAILY/PO; 25 MG/DAILY/PO
     Route: 048
     Dates: start: 20030201, end: 20030901
  3. VIOXX [Suspect]
     Indication: ARTHRALGIA
     Dosage: 50 MG/DAILY/PO; 25 MG/DAILY/PO
     Route: 048
     Dates: start: 20030901, end: 20031003
  4. VIOXX [Suspect]
     Indication: PROCEDURAL PAIN
     Dosage: 50 MG/DAILY/PO; 25 MG/DAILY/PO
     Route: 048
     Dates: start: 20030901, end: 20031003
  5. NEURONTIN [Concomitant]
  6. OXYCONTIN [Concomitant]

REACTIONS (1)
  - DUODENAL ULCER PERFORATION [None]
